FAERS Safety Report 5430203-9 (Version None)
Quarter: 2007Q3

REPORT INFORMATION
  Report Type: 
  Country: None (occurrence: None)
  Receive Date: 20070731
  Receipt Date: 20070626
  Transmission Date: 20080115
  Serious: No
  Sender: FDA-Public Use
  Company Number: US200705003592

PATIENT
  Age: 72 Year
  Sex: Female

DRUGS (4)
  1. BYETTA [Suspect]
     Indication: TYPE 2 DIABETES MELLITUS
     Dosage: 5 UG, SUBCUTANEOUS
     Route: 058
     Dates: start: 20070503, end: 20070503
  2. EXENATIDE 5MCG PEN,DISPOSABLE DEVICE (EXENATIDE PEN (5MCG))PEN,DISPOSA [Concomitant]
  3. AVANDIA [Concomitant]
  4. GLIPIZIDE [Concomitant]

REACTIONS (13)
  - ANXIETY [None]
  - ASTHENIA [None]
  - DIZZINESS [None]
  - DYSPHAGIA [None]
  - FEELING COLD [None]
  - HEAD TITUBATION [None]
  - LISTLESS [None]
  - MOBILITY DECREASED [None]
  - NERVOUSNESS [None]
  - SOMNOLENCE [None]
  - SPEECH DISORDER [None]
  - THINKING ABNORMAL [None]
  - THROAT TIGHTNESS [None]
